FAERS Safety Report 6239306-2 (Version None)
Quarter: 2009Q2

REPORT INFORMATION
  Report Type: 
  Country: None (occurrence: None)
  Receive Date: 20090622
  Receipt Date: 20090613
  Transmission Date: 20091009
  Serious: Yes (Hospitalization)
  Sender: FDA-Public Use
  Company Number: PHHY2009IE24010

PATIENT
  Sex: Male

DRUGS (4)
  1. RASILEZ [Suspect]
  2. ACE INHIBITOR NOS [Concomitant]
  3. ANGIOTENSIN RECEPTOR BLOCKER [Concomitant]
  4. ALDOSTERONE ANTAGONISTS [Concomitant]

REACTIONS (5)
  - BLOOD PRESSURE DECREASED [None]
  - DIARRHOEA [None]
  - FLUID INTAKE REDUCED [None]
  - HYPOPHAGIA [None]
  - RENAL FAILURE ACUTE [None]
